FAERS Safety Report 23675790 (Version 3)
Quarter: 2024Q2

REPORT INFORMATION
  Report Type: Spontaneous
  Country: US (occurrence: None)
  Receive Date: 20240327
  Receipt Date: 20240510
  Transmission Date: 20240716
  Serious: No
  Sender: FDA-Public Use
  Company Number: 2024A069791

PATIENT
  Age: 2704 Week
  Sex: Female

DRUGS (1)
  1. FASENRA [Suspect]
     Active Substance: BENRALIZUMAB
     Indication: Asthma
     Dosage: INJECT 1 PEN, 30MG UNDER THE SKIN AT WEEK 0, 4 AND 8, THEN INJECT 1 PEN, 30MG EVERY 8 WEEKS30MG/...
     Route: 058
     Dates: start: 202403

REACTIONS (6)
  - Injection site haemorrhage [Unknown]
  - Injection site pain [Unknown]
  - Needle issue [Unknown]
  - Device leakage [Unknown]
  - Device use issue [Unknown]
  - Drug dose omission by device [Unknown]

NARRATIVE: CASE EVENT DATE: 20240318
